FAERS Safety Report 4964021-2 (Version None)
Quarter: 2006Q1

REPORT INFORMATION
  Report Type: 
  Country: None (occurrence: None)
  Receive Date: 20060330
  Receipt Date: 20060323
  Transmission Date: 20060701
  Serious: Yes (Hospitalization)
  Sender: FDA-Public Use
  Company Number: 2006041241

PATIENT
  Age: 73 Year
  Sex: Male

DRUGS (7)
  1. MICRONASE [Suspect]
     Indication: ILL-DEFINED DISORDER
  2. CRESTOR [Concomitant]
  3. PLAVIX [Concomitant]
  4. ADVAIR DISKUS 100/50 [Concomitant]
  5. FOLIC ACID [Concomitant]
  6. LISINOPRIL [Concomitant]
  7. PRED FORTE [Concomitant]

REACTIONS (2)
  - CARDIAC FAILURE CONGESTIVE [None]
  - RASH [None]
